FAERS Safety Report 10611892 (Version 1)
Quarter: 2014Q4

REPORT INFORMATION
  Report Type: Spontaneous
  Country: US (occurrence: US)
  Receive Date: 20141126
  Receipt Date: 20141126
  Transmission Date: 20150529
  Serious: Yes (Hospitalization, Other)
  Sender: FDA-Public Use
  Company Number: US-GILEAD-2014-0124331

PATIENT
  Age: 38 Year
  Sex: Female

DRUGS (10)
  1. OXYCODONE [Concomitant]
     Active Substance: OXYCODONE
  2. SILDENAFIL. [Concomitant]
     Active Substance: SILDENAFIL
  3. WARFARIN [Concomitant]
     Active Substance: WARFARIN
  4. PROTONIX [Concomitant]
     Active Substance: PANTOPRAZOLE SODIUM
  5. ALBUTEROL                          /00139501/ [Concomitant]
     Active Substance: ALBUTEROL
  6. LETAIRIS [Suspect]
     Active Substance: AMBRISENTAN
     Indication: PULMONARY ARTERIAL HYPERTENSION
     Dosage: 10 MG, QD
     Route: 065
     Dates: start: 201310
  7. REYATAZ [Concomitant]
     Active Substance: ATAZANAVIR SULFATE
  8. TRUVADA [Concomitant]
     Active Substance: EMTRICITABINE\TENOFOVIR DISOPROXIL FUMARATE
  9. TYVASO [Concomitant]
     Active Substance: TREPROSTINIL
  10. LASIX [Concomitant]
     Active Substance: FUROSEMIDE

REACTIONS (3)
  - Pneumonia [Not Recovered/Not Resolved]
  - Unevaluable event [Not Recovered/Not Resolved]
  - Dyspnoea [Not Recovered/Not Resolved]

NARRATIVE: CASE EVENT DATE: 20141110
